FAERS Safety Report 20214866 (Version 2)
Quarter: 2021Q4

REPORT INFORMATION
  Report Type: Spontaneous
  Country: US (occurrence: US)
  Receive Date: 20211222
  Receipt Date: 20211224
  Transmission Date: 20220303
  Serious: No
  Sender: FDA-Public Use
  Company Number: US-HETERO-HET2021US02272

PATIENT

DRUGS (1)
  1. LEVOFLOXACIN [Suspect]
     Active Substance: LEVOFLOXACIN
     Indication: Pneumonia
     Dosage: 500 MG, HALF TABLET PER DAY, BOTTLES OF 50 TABLETS (AROUND 7 TABLETS CONSUMED)
     Route: 048

REACTIONS (3)
  - Malaise [Unknown]
  - Dyspnoea [Unknown]
  - Burning sensation [Unknown]
